FAERS Safety Report 9894901 (Version 7)
Quarter: 2014Q4

REPORT INFORMATION
  Report Type: Report from Study
  Country: US (occurrence: US)
  Receive Date: 20140213
  Receipt Date: 20141230
  Transmission Date: 20150529
  Serious: No
  Sender: FDA-Public Use
  Company Number: US-SA-2013SA118422

PATIENT
  Age: 43 Year
  Sex: Female

DRUGS (3)
  1. KYNAMRO [Suspect]
     Active Substance: MIPOMERSEN SODIUM
     Indication: TYPE IIA HYPERLIPIDAEMIA
     Dosage: 3 WEEKS AGO
     Route: 058
     Dates: start: 20131030
  2. CYANOCOBALAMIN. [Concomitant]
     Active Substance: CYANOCOBALAMIN
  3. KYNAMRO [Suspect]
     Active Substance: MIPOMERSEN SODIUM
     Indication: TYPE IIA HYPERLIPIDAEMIA
     Dosage: 3 WEEKS AGO
     Route: 058
     Dates: start: 20131030

REACTIONS (14)
  - Pancreatic enzymes increased [Not Recovered/Not Resolved]
  - Fatigue [Unknown]
  - Oropharyngeal pain [Unknown]
  - Injection site pain [Unknown]
  - Influenza like illness [Unknown]
  - Liver disorder [Not Recovered/Not Resolved]
  - Drug dose omission [Unknown]
  - Back pain [Unknown]
  - Nasopharyngitis [Unknown]
  - Arthritis [Unknown]
  - Chills [Unknown]
  - Abdominal pain upper [Unknown]
  - Drug dose omission [Unknown]
  - Dyspnoea [Not Recovered/Not Resolved]

NARRATIVE: CASE EVENT DATE: 2014
